FAERS Safety Report 10339310 (Version 1)
Quarter: 2014Q3

REPORT INFORMATION
  Report Type: Spontaneous
  Country: US (occurrence: None)
  Receive Date: 20140722
  Receipt Date: 20140722
  Transmission Date: 20150326
  Serious: Yes (Other)
  Sender: FDA-Public Use
  Company Number: None

PATIENT
  Age: 62 Year
  Sex: Male

DRUGS (2)
  1. SOMATULINE DEPOT [Suspect]
     Active Substance: LANREOTIDE ACETATE
     Indication: ACROMEGALY
     Dosage: 120MG, Q21 DAYS, SQ
     Route: 058
     Dates: start: 20110426
  2. SOMATULINE DEPOT [Suspect]
     Active Substance: LANREOTIDE ACETATE
     Indication: GIGANTISM
     Dosage: 120MG, Q21 DAYS, SQ
     Route: 058
     Dates: start: 20110426

REACTIONS (1)
  - Injection site abscess [None]

NARRATIVE: CASE EVENT DATE: 20140718
